FAERS Safety Report 23476343 (Version 1)
Quarter: 2024Q1

REPORT INFORMATION
  Report Type: Spontaneous
  Country: CZ (occurrence: CZ)
  Receive Date: 20240204
  Receipt Date: 20240204
  Transmission Date: 20240410
  Serious: No
  Sender: FDA-Public Use
  Company Number: CZ-EXELIXIS-CABO-23062937

PATIENT
  Age: 54 Year
  Sex: Male

DRUGS (3)
  1. CABOMETYX [Suspect]
     Active Substance: CABOZANTINIB S-MALATE
     Indication: Metastatic renal cell carcinoma
     Dosage: 60 MG
     Route: 065
     Dates: start: 20220107
  2. CABOMETYX [Suspect]
     Active Substance: CABOZANTINIB S-MALATE
     Dosage: 40 MG
     Route: 065
     Dates: start: 20220224
  3. CABOMETYX [Suspect]
     Active Substance: CABOZANTINIB S-MALATE
     Dosage: 20 MG
     Route: 065
     Dates: start: 20220507

REACTIONS (8)
  - Hyperhidrosis [Unknown]
  - Muscle tightness [Unknown]
  - Restlessness [Unknown]
  - Hyperaesthesia [Unknown]
  - Anxiety [Unknown]
  - Fatigue [Unknown]
  - Asthenia [Unknown]
  - Decreased appetite [Unknown]
